FAERS Safety Report 7206195-9 (Version None)
Quarter: 2011Q1

REPORT INFORMATION
  Report Type: 
  Country: None (occurrence: None)
  Receive Date: 20110103
  Receipt Date: 20101221
  Transmission Date: 20110831
  Serious: Yes (Other)
  Sender: FDA-Public Use
  Company Number: ES-JNJFOC-20101207964

PATIENT
  Age: 88 Year
  Sex: Female

DRUGS (1)
  1. ZALDIAR [Suspect]
     Indication: PRODUCT USED FOR UNKNOWN INDICATION
     Dosage: 37.5 / 325 MG
     Route: 048

REACTIONS (2)
  - HYPERTENSIVE CRISIS [None]
  - VOMITING [None]
